FAERS Safety Report 9999852 (Version 1)
Quarter: 2014Q1

REPORT INFORMATION
  Report Type: Spontaneous
  Country: US (occurrence: None)
  Receive Date: 20140228
  Receipt Date: 20140228
  Transmission Date: 20141002
  Serious: Yes (Hospitalization)
  Sender: FDA-Public Use
  Company Number: US-JNJFOC-20130801984

PATIENT
  Age: 6 Year
  Sex: Male
  Weight: 37.2 kg

DRUGS (2)
  1. CHILDREN^S MOTRIN DYE-FREE ORAL SUSPENSION (IBUPROFEN) SUSPENSION [Suspect]
     Indication: HEADACHE
     Dosage: .3 IN 6 HOUR , ORAL
     Route: 048
     Dates: start: 20130723, end: 20130724
  2. ACETAMINOPHE (PARACETAMOL) UNSPECIFIED [Suspect]
     Indication: PRODUCT USED FOR UNKNOWN INDICATION
     Dosage: UNKNOWN  UNKNOWN THERAPY DATES

REACTIONS (1)
  - Rash [None]
